FAERS Safety Report 8061005-5 (Version None)
Quarter: 2012Q1

REPORT INFORMATION
  Report Type: 
  Country: None (occurrence: None)
  Receive Date: 20120120
  Receipt Date: 20120117
  Transmission Date: 20120608
  Serious: Yes (Life-Threatening, Hospitalization, Other)
  Sender: FDA-Public Use
  Company Number: CHPA2012US001584

PATIENT
  Age: 77 Year
  Sex: Female

DRUGS (2)
  1. EXCEDRIN (MIGRAINE) [Suspect]
     Indication: SINUS CONGESTION
     Dosage: 1 DF, QD
     Route: 048
  2. ANTIHYPERTENSIVE DRUGS [Concomitant]
     Indication: HYPERTENSION

REACTIONS (5)
  - CHEST PAIN [None]
  - ATRIAL FIBRILLATION [None]
  - OFF LABEL USE [None]
  - UNDERDOSE [None]
  - GOUT [None]
